FAERS Safety Report 5445067-7 (Version None)
Quarter: 2007Q3

REPORT INFORMATION
  Report Type: 
  Country: None (occurrence: None)
  Receive Date: 20070731
  Receipt Date: 20070503
  Transmission Date: 20080115
  Serious: Yes (Hospitalization)
  Sender: FDA-Public Use
  Company Number: US200705000179

PATIENT
  Age: 69 Year
  Sex: Female

DRUGS (3)
  1. BYETTA [Suspect]
     Dosage: 5 UG, 2/D, SUBCUTANEOUS
     Route: 058
     Dates: start: 20051201
  2. EXENATIDE [Concomitant]
  3. METFORMIN HCL [Concomitant]

REACTIONS (3)
  - RENAL FAILURE ACUTE [None]
  - VIRAL DIARRHOEA [None]
  - VOMITING [None]
